FAERS Safety Report 4385122-6 (Version None)
Quarter: 2004Q2

REPORT INFORMATION
  Report Type: 
  Country: None (occurrence: None)
  Receive Date: 20040624
  Receipt Date: 20040624
  Transmission Date: 20050107
  Serious: Yes (Hospitalization)
  Sender: FDA-Public Use
  Company Number: None

PATIENT
  Age: 82 Year
  Sex: Female
  Weight: 77 kg

DRUGS (3)
  1. HEPARIN [Suspect]
     Indication: IMPLANTABLE DEFIBRILLATOR INSERTION
     Dosage: IV DRIP INTRAVENOUS
     Route: 041
     Dates: start: 20040109, end: 20040113
  2. HEPARIN [Suspect]
     Indication: PROPHYLAXIS
     Dosage: IV DRIP INTRAVENOUS
     Route: 041
     Dates: start: 20040109, end: 20040113
  3. ASPIRIN [Suspect]
     Indication: CORONARY ARTERY DISEASE
     Dosage: 325 MG DAILY ORAL
     Route: 048

REACTIONS (4)
  - ABDOMINAL PAIN [None]
  - CARDIAC OPERATION [None]
  - HYPOTENSION [None]
  - SURGICAL PROCEDURE REPEATED [None]
